FAERS Safety Report 5605381-9 (Version None)
Quarter: 2008Q1

REPORT INFORMATION
  Report Type: 
  Country: None (occurrence: None)
  Receive Date: 20080125
  Receipt Date: 20080125
  Transmission Date: 20080703
  Serious: Yes (Hospitalization)
  Sender: FDA-Public Use
  Company Number: None

PATIENT
  Sex: Male
  Weight: 101 kg

DRUGS (1)
  1. WARFARIN SODIUM [Suspect]
     Indication: ATRIAL FIBRILLATION
     Dosage: 5MG QD PO } 1 YEAR
     Route: 048

REACTIONS (5)
  - ATAXIA [None]
  - DIZZINESS [None]
  - HYPERTENSION [None]
  - SOMNOLENCE [None]
  - VOMITING [None]
